FAERS Safety Report 12519135 (Version 1)
Quarter: 2016Q3

REPORT INFORMATION
  Report Type: Report from Study
  Country: BR (occurrence: BR)
  Receive Date: 20160701
  Receipt Date: 20160701
  Transmission Date: 20161109
  Serious: Yes (Other)
  Sender: FDA-Public Use
  Company Number: BR-BIOGEN-2016BI00257920

PATIENT
  Sex: Male

DRUGS (2)
  1. TECFIDERA [Suspect]
     Active Substance: DIMETHYL FUMARATE
     Indication: MULTIPLE SCLEROSIS
     Dosage: AT 10:00 AM AND 10:00 PM
     Route: 065
     Dates: start: 20160603
  2. TECFIDERA [Suspect]
     Active Substance: DIMETHYL FUMARATE
     Dosage: AT 10:00 AM AND 10:00 PM
     Route: 065

REACTIONS (7)
  - Neurosis [Unknown]
  - Pruritus [Recovered/Resolved]
  - Generalised erythema [Unknown]
  - Feeling hot [Unknown]
  - Fear [Unknown]
  - Seizure [Unknown]
  - Multiple sclerosis [Unknown]
